FAERS Safety Report 20298869 (Version 1)
Quarter: 2022Q1

REPORT INFORMATION
  Report Type: Report from Study
  Country: US (occurrence: US)
  Receive Date: 20220105
  Receipt Date: 20220105
  Transmission Date: 20220423
  Serious: Yes (Death)
  Sender: FDA-Public Use
  Company Number: US-MYLANLABS-2022M1000607

PATIENT
  Age: 79 Year

DRUGS (3)
  1. AZACITIDINE [Suspect]
     Active Substance: AZACITIDINE
     Indication: Acute myeloid leukaemia
     Dosage: 75 MILLIGRAM/SQ. METER, CYCLE, ON DAYS 1-7 IN CYCLES OF 28 DAYS
     Route: 065
  2. TAGRAXOFUSP [Suspect]
     Active Substance: TAGRAXOFUSP
     Indication: Acute myeloid leukaemia
     Dosage: UNK UNK, CYCLE
     Route: 065
  3. VENETOCLAX [Suspect]
     Active Substance: VENETOCLAX
     Indication: Acute myeloid leukaemia
     Dosage: 400 MILLIGRAM, CYCLE, ON DAYS 1-21, RAMP UP DAYS 1-3 IN CYCLES OF 28 DAYS
     Route: 065

REACTIONS (3)
  - Capillary leak syndrome [Fatal]
  - Tumour lysis syndrome [Fatal]
  - Multiple organ dysfunction syndrome [Fatal]
